FAERS Safety Report 8454181-3 (Version None)
Quarter: 2012Q2

REPORT INFORMATION
  Report Type: 
  Country: None (occurrence: None)
  Receive Date: 20120620
  Receipt Date: 20120612
  Transmission Date: 20120825
  Serious: Yes (Hospitalization)
  Sender: FDA-Public Use
  Company Number: FR-B.I. PHARMACEUTICALS,INC./RIDGEFIELD-2012-FF-00430FF

PATIENT
  Sex: Male
  Weight: 72 kg

DRUGS (5)
  1. ASPIRIN [Concomitant]
  2. EZETIMIBE [Concomitant]
     Dosage: 50
  3. BISOPROLOL FUMARATE [Concomitant]
  4. PRADAXA [Suspect]
     Indication: ATRIAL FIBRILLATION
     Dosage: 220 MG
     Route: 048
     Dates: start: 20111101
  5. CANDESARTAN CILEXETIL AND HYDROCHLOROTHIAZIDE [Concomitant]
     Dosage: 16/12.5

REACTIONS (2)
  - RECTAL HAEMORRHAGE [None]
  - COLON NEOPLASM [None]
